FAERS Safety Report 5954804-4 (Version None)
Quarter: 2008Q4

REPORT INFORMATION
  Report Type: 
  Country: None (occurrence: None)
  Receive Date: 20081031
  Receipt Date: 20080619
  Transmission Date: 20090506
  Serious: No
  Sender: FDA-Public Use
  Company Number: 2008PV035831

PATIENT
  Age: 53 Year
  Sex: Female

DRUGS (1)
  1. SYMLIN [Suspect]
     Indication: TYPE 2 DIABETES MELLITUS
     Dosage: 60 MCG; SC
     Route: 058
     Dates: start: 20080601

REACTIONS (1)
  - HEADACHE [None]
